FAERS Safety Report 15433009 (Version 1)
Quarter: 2018Q3

REPORT INFORMATION
  Report Type: Spontaneous
  Country: JP (occurrence: JP)
  Receive Date: 20180927
  Receipt Date: 20180927
  Transmission Date: 20181010
  Serious: No
  Sender: FDA-Public Use
  Company Number: JP-NOVEN PHARMACEUTICALS, INC.-JP2018000158

PATIENT

DRUGS (6)
  1. ESTRADIOL/NORETHISTERONE ACETATE [Suspect]
     Active Substance: ESTRADIOL\NORETHINDRONE ACETATE
     Indication: MENOPAUSAL SYMPTOMS
     Dosage: UNK, UNKNOWN
     Route: 062
     Dates: start: 20180207, end: 20180223
  2. LEXOTAN [Concomitant]
     Active Substance: BROMAZEPAM
  3. TRAZODONE [Suspect]
     Active Substance: TRAZODONE HYDROCHLORIDE
     Indication: PRODUCT USED FOR UNKNOWN INDICATION
     Dosage: UNK, UNKNOWN
     Route: 065
  4. LUNESTA [Concomitant]
     Active Substance: ESZOPICLONE
  5. HANGEKOBOKUTO [Concomitant]
     Active Substance: HERBALS
  6. TRIAZOLAM. [Concomitant]
     Active Substance: TRIAZOLAM

REACTIONS (1)
  - Urticaria [Recovering/Resolving]

NARRATIVE: CASE EVENT DATE: 20180223
